FAERS Safety Report 17645856 (Version 4)
Quarter: 2020Q2

REPORT INFORMATION
  Report Type: Report from Study
  Country: US (occurrence: US)
  Receive Date: 20200408
  Receipt Date: 20200519
  Transmission Date: 20200713
  Serious: Yes (Other)
  Sender: FDA-Public Use
  Company Number: NVSC2020US091669

PATIENT
  Sex: Female

DRUGS (1)
  1. ILARIS [Suspect]
     Active Substance: CANAKINUMAB
     Indication: CRYOPYRIN ASSOCIATED PERIODIC SYNDROME
     Dosage: 150MG (Q 8 WEEKS)
     Route: 058
     Dates: start: 20191216

REACTIONS (4)
  - Eye burns [Unknown]
  - Rash [Unknown]
  - Hypoaesthesia [Unknown]
  - Vision blurred [Unknown]
